FAERS Safety Report 14577678 (Version 1)
Quarter: 2018Q1

REPORT INFORMATION
  Report Type: Spontaneous
  Country: US (occurrence: US)
  Receive Date: 20180226
  Receipt Date: 20180226
  Transmission Date: 20180509
  Serious: No
  Sender: FDA-Public Use
  Company Number: None

PATIENT
  Age: 25 Year
  Sex: Female
  Weight: 83.25 kg

DRUGS (5)
  1. TYLENOL [Concomitant]
     Active Substance: ACETAMINOPHEN
  2. KYLEENA [Suspect]
     Active Substance: LEVONORGESTREL
     Indication: CONTRACEPTION
     Dosage: ?          QUANTITY:1 DEVICE;OTHER FREQUENCY:ONCE;?
     Route: 067
     Dates: start: 20180130
  3. METHYLPHENIDATE. [Concomitant]
     Active Substance: METHYLPHENIDATE
  4. ADVIL [Concomitant]
     Active Substance: IBUPROFEN
  5. RIZATRIPTAN. [Concomitant]
     Active Substance: RIZATRIPTAN

REACTIONS (6)
  - Tension headache [None]
  - Complication of device insertion [None]
  - Visual impairment [None]
  - Migraine [None]
  - Haemorrhage [None]
  - Confusional state [None]

NARRATIVE: CASE EVENT DATE: 20180215
